FAERS Safety Report 7440115-7 (Version None)
Quarter: 2011Q2

REPORT INFORMATION
  Report Type: 
  Country: None (occurrence: None)
  Receive Date: 20110427
  Receipt Date: 20110426
  Transmission Date: 20111010
  Serious: Yes (Death)
  Sender: FDA-Public Use
  Company Number: BE-SANOFI-AVENTIS-2011SA025560

PATIENT
  Age: 66 Year
  Sex: Male

DRUGS (4)
  1. CISPLATIN [Concomitant]
     Route: 065
     Dates: start: 20110426, end: 20110426
  2. DOCETAXEL [Suspect]
     Route: 041
     Dates: start: 20110426, end: 20110426
  3. DOCETAXEL [Suspect]
     Route: 041
     Dates: start: 20110426, end: 20110426
  4. DOCETAXEL [Suspect]
     Route: 041
     Dates: start: 20110426, end: 20110426

REACTIONS (1)
  - DEATH [None]
